FAERS Safety Report 12937960 (Version 1)
Quarter: 2016Q4

REPORT INFORMATION
  Report Type: Spontaneous
  Country: GB (occurrence: GB)
  Receive Date: 20161114
  Receipt Date: 20161114
  Transmission Date: 20170207
  Serious: Yes (Other)
  Sender: FDA-Public Use
  Company Number: GB-JNJFOC-20161104702

PATIENT
  Age: 69 Year
  Sex: Female

DRUGS (6)
  1. METHOTREXATE. [Concomitant]
     Active Substance: METHOTREXATE
     Indication: PRODUCT USED FOR UNKNOWN INDICATION
     Dosage: DOSE: 5, CUMULATIVE DOSE TO FIRST REACTION: 0.71428571 (BOTH UNITS UNSPECIFIED)
     Route: 065
     Dates: start: 20160803, end: 20161011
  2. ESOMEPRAZOLE [Concomitant]
     Active Substance: ESOMEPRAZOLE
     Indication: PRODUCT USED FOR UNKNOWN INDICATION
     Dosage: DOSE: 1, CUMULATIVE DOSE TO FIRST REACTION: 1 (BOTH UNITS UNSPECIFIED)
     Route: 065
     Dates: start: 20160803
  3. COCODAMOL [Suspect]
     Active Substance: ACETAMINOPHEN\CODEINE PHOSPHATE
     Indication: PRODUCT USED FOR UNKNOWN INDICATION
     Route: 065
     Dates: start: 20160803
  4. FOLIC ACID. [Concomitant]
     Active Substance: FOLIC ACID
     Indication: PRODUCT USED FOR UNKNOWN INDICATION
     Dosage: DOSE: 1, CUMULATIVE DOSE TO FIRST REACTION: 6 (BOTH UNITS UNSPECIFIED)
     Route: 065
     Dates: start: 20160803
  5. PENTASA [Concomitant]
     Active Substance: MESALAMINE
     Indication: PRODUCT USED FOR UNKNOWN INDICATION
     Dosage: DOSE: 2, CUMULATIVE DOSE TO FIRST REACTION: 6 (UNITS UNSPECIFIED BOTH)
     Route: 065
     Dates: start: 20160803
  6. CLARITHROMYCIN. [Concomitant]
     Active Substance: CLARITHROMYCIN
     Indication: PRODUCT USED FOR UNKNOWN INDICATION
     Dosage: DOSE: 1, CUMULATIVE DOSE TO FIRST REACTION: 18 (BOTH UNITS UNSPECIFIED)
     Route: 065
     Dates: start: 20160812, end: 20160817

REACTIONS (1)
  - Lip swelling [Recovered/Resolved]

NARRATIVE: CASE EVENT DATE: 20160803
